FAERS Safety Report 5087800-2 (Version None)
Quarter: 2006Q3

REPORT INFORMATION
  Report Type: 
  Country: None (occurrence: None)
  Receive Date: 20060821
  Receipt Date: 20060821
  Transmission Date: 20061208
  Serious: Yes (Hospitalization)
  Sender: FDA-Public Use
  Company Number: None

PATIENT
  Age: 48 Year
  Sex: Male
  Weight: 45.3597 kg

DRUGS (12)
  1. DOCETAXEL       25 MG/M2 [Suspect]
     Indication: NEOPLASM MALIGNANT
     Dosage: 38 MG    DAY 1 Q 21 DAYS     IV DRIP
     Route: 041
     Dates: start: 20060807, end: 20060807
  2. FLUOROURACIL [Suspect]
     Indication: NEOPLASM MALIGNANT
     Dosage: 918 MG   DAYS 1-5 Q 21 DAYS   IV DRIP
     Route: 041
     Dates: start: 20060807, end: 20060811
  3. NEUPOGEN [Concomitant]
  4. ARANESP [Concomitant]
  5. LORTAB [Concomitant]
  6. DURAGESIC-100 [Concomitant]
  7. ASPIRIN [Concomitant]
  8. COUMADIN [Concomitant]
  9. PREVACID [Concomitant]
  10. LACI-LUBE [Concomitant]
  11. ATIVAN [Concomitant]
  12. ANTIVERT [Concomitant]

REACTIONS (3)
  - PYREXIA [None]
  - SEPSIS [None]
  - SYNCOPE [None]
